FAERS Safety Report 23714189 (Version 2)
Quarter: 2024Q2

REPORT INFORMATION
  Report Type: Spontaneous
  Country: US (occurrence: US)
  Receive Date: 20240405
  Receipt Date: 20240512
  Transmission Date: 20240716
  Serious: No
  Sender: FDA-Public Use
  Company Number: US-SA-SAC20240402000401

PATIENT
  Age: 38 Year
  Sex: Female
  Weight: 73.02 kg

DRUGS (1)
  1. DUPIXENT [Suspect]
     Active Substance: DUPILUMAB
     Indication: Chronic rhinosinusitis with nasal polyps
     Dosage: 300 MG, QOW
     Route: 058
     Dates: start: 202312

REACTIONS (7)
  - Anosmia [Recovered/Resolved]
  - Ageusia [Recovered/Resolved]
  - Facial pain [Unknown]
  - Sinus disorder [Unknown]
  - Condition aggravated [Unknown]
  - Inflammation [Unknown]
  - Pruritus [Unknown]

NARRATIVE: CASE EVENT DATE: 20240101
